FAERS Safety Report 24631805 (Version 2)
Quarter: 2024Q4

REPORT INFORMATION
  Report Type: Spontaneous
  Country: US (occurrence: US)
  Receive Date: 20241118
  Receipt Date: 20241225
  Transmission Date: 20250114
  Serious: Yes (Hospitalization, Other)
  Sender: SANOFI AVENTIS
  Company Number: US-SA-2024SA332996

PATIENT
  Age: 66 Year
  Sex: Female
  Weight: 113.32 kg

DRUGS (38)
  1. DUPIXENT [Suspect]
     Active Substance: DUPILUMAB
     Indication: Asthma
     Dosage: 300 MG, QOW
     Route: 058
     Dates: end: 2024
  2. MAXEPA [DOCOSAHEXAENOIC ACID;EICOSAPENTAENOIC ACID] [Concomitant]
  3. NATURAL FIBRE [PLANTAGO AFRA] [Concomitant]
  4. MUCINEX DM [Concomitant]
     Active Substance: DEXTROMETHORPHAN HYDROBROMIDE\GUAIFENESIN
     Dosage: UNK
  5. TRAZODONE HYDROCHLORIDE [Concomitant]
     Active Substance: TRAZODONE HYDROCHLORIDE
  6. PROAIR HFA [Concomitant]
     Active Substance: ALBUTEROL SULFATE
  7. TYLENOL [Concomitant]
     Active Substance: ACETAMINOPHEN
     Dosage: UNK
  8. SUPER MULTIPLE [Concomitant]
  9. IRON [Concomitant]
     Active Substance: IRON
  10. IBUPROFEN [Concomitant]
     Active Substance: IBUPROFEN
  11. PAIN + FEVER [Concomitant]
  12. MAXZIDE [Concomitant]
     Active Substance: HYDROCHLOROTHIAZIDE\TRIAMTERENE
  13. TOPROL XL [Concomitant]
     Active Substance: METOPROLOL SUCCINATE
  14. ADVAIR HFA [Concomitant]
     Active Substance: FLUTICASONE PROPIONATE\SALMETEROL XINAFOATE
  15. DEMECLOCYCLINE HYDROCHLORIDE [Concomitant]
     Active Substance: DEMECLOCYCLINE HYDROCHLORIDE
  16. COLACE [Concomitant]
     Active Substance: DOCUSATE SODIUM
  17. VITAMINS NOS [Concomitant]
     Active Substance: VITAMINS
  18. B COMPLEX [BIOTIN;CALCIUM PANTOTHENATE;CYANOCOBALAMIN;FOLIC ACID;NICOT [Concomitant]
  19. VITAMIN D3 [Concomitant]
     Active Substance: CHOLECALCIFEROL
  20. ZYRTEC [Concomitant]
     Active Substance: CETIRIZINE HYDROCHLORIDE
  21. MINOXIDIL [Concomitant]
     Active Substance: MINOXIDIL
  22. SUCRALFATE [Concomitant]
     Active Substance: SUCRALFATE
  23. MONTELUKAST SODIUM [Concomitant]
     Active Substance: MONTELUKAST\MONTELUKAST SODIUM
     Dosage: UNK
  24. SUMATRIPTAN SUCCINATE [Concomitant]
     Active Substance: SUMATRIPTAN SUCCINATE
  25. PREVACID [Concomitant]
     Active Substance: LANSOPRAZOLE
  26. ACETAMINOPHEN [Concomitant]
     Active Substance: ACETAMINOPHEN
  27. BUPROPION HYDROCHLORIDE [Concomitant]
     Active Substance: BUPROPION HYDROCHLORIDE
  28. CYCLOBENZAPRINE HYDROCHLORIDE [Concomitant]
     Active Substance: CYCLOBENZAPRINE HYDROCHLORIDE
  29. SYNTHROID [Concomitant]
     Active Substance: LEVOTHYROXINE SODIUM
  30. ATIVAN [Concomitant]
     Active Substance: LORAZEPAM
  31. IPRATROPIUM BROMIDE [Concomitant]
     Active Substance: IPRATROPIUM BROMIDE
  32. FLUNISOLIDE [Concomitant]
     Active Substance: FLUNISOLIDE
  33. ONDANSETRON HYDROCHLORIDE [Concomitant]
     Active Substance: ONDANSETRON HYDROCHLORIDE
  34. SPIRIVA RESPIMAT [Concomitant]
     Active Substance: TIOTROPIUM BROMIDE
  35. DISTILLED WATER [WATER FOR INJECTION] [Concomitant]
  36. LEVALBUTEROL HYDROCHLORIDE [Concomitant]
     Active Substance: LEVALBUTEROL HYDROCHLORIDE
  37. ADVAIR HFA [Concomitant]
     Active Substance: FLUTICASONE PROPIONATE\SALMETEROL XINAFOATE
  38. XOPENEX HFA [Concomitant]
     Active Substance: LEVALBUTEROL TARTRATE

REACTIONS (2)
  - Spinal operation [Unknown]
  - Paralysis [Unknown]

NARRATIVE: CASE EVENT DATE: 20240901
